FAERS Safety Report 4648939-6 (Version None)
Quarter: 2005Q2

REPORT INFORMATION
  Report Type: 
  Country: None (occurrence: None)
  Receive Date: 20050427
  Receipt Date: 20050411
  Transmission Date: 20051028
  Serious: Yes (Hospitalization, Other)
  Sender: FDA-Public Use
  Company Number: USA050393970

PATIENT
  Age: 67 Year
  Sex: Male
  Weight: 70 kg

DRUGS (1)
  1. GEMZAR [Suspect]
     Indication: BLADDER CANCER
     Dosage: 1850 MG OTHER
     Dates: start: 20041001, end: 20050224

REACTIONS (11)
  - ANAEMIA [None]
  - COUGH [None]
  - DYSPNOEA [None]
  - HYPERKALAEMIA [None]
  - HYPERTENSION [None]
  - METABOLIC ACIDOSIS [None]
  - MUSCULOSKELETAL DISCOMFORT [None]
  - RENAL DISORDER [None]
  - RENAL FAILURE ACUTE [None]
  - URETERAL DISORDER [None]
  - WHITE BLOOD CELL COUNT INCREASED [None]
